FAERS Safety Report 4325065-7 (Version None)
Quarter: 2004Q1

REPORT INFORMATION
  Report Type: 
  Country: None (occurrence: None)
  Receive Date: 20040324
  Receipt Date: 20040315
  Transmission Date: 20041129
  Serious: Yes (Hospitalization)
  Sender: FDA-Public Use
  Company Number: 2004017944

PATIENT
  Sex: Male

DRUGS (11)
  1. LOPID [Suspect]
     Indication: ILL-DEFINED DISORDER
     Dates: start: 20031101
  2. SIMVASTATIN [Suspect]
     Indication: ILL-DEFINED DISORDER
     Dates: start: 20010101
  3. METFORMIN HCL [Concomitant]
  4. GLICLAZIDE (GLICLAZIDE) [Concomitant]
  5. ROSIGLITAZONE MALEATE [Concomitant]
  6. BENDROFLUMETHIAZIDE (BENDROFLUMETHIAZIDE) [Concomitant]
  7. ISOSORBIDE MONONITRATE [Concomitant]
  8. OMEPRAZOLE [Concomitant]
  9. ROFECOXIB [Concomitant]
  10. RAMIPRIL [Concomitant]
  11. NITROGLYCERIN [Concomitant]

REACTIONS (2)
  - ANGINA PECTORIS [None]
  - MUSCLE DISORDER [None]
